FAERS Safety Report 5250946-X (Version None)
Quarter: 2007Q1

REPORT INFORMATION
  Report Type: 
  Country: None (occurrence: None)
  Receive Date: 20070228
  Receipt Date: 20060731
  Transmission Date: 20070707
  Serious: No
  Sender: FDA-Public Use
  Company Number: US-GLAXOSMITHKLINE-A0614211A

PATIENT
  Age: 40 Year
  Sex: Male

DRUGS (4)
  1. LAMICTAL [Suspect]
     Indication: BIPOLAR DISORDER
     Dosage: 50MG TWICE PER DAY
     Route: 048
     Dates: start: 20060725, end: 20060728
  2. GEODON [Concomitant]
  3. PAROXETINE HCL [Concomitant]
  4. LEVAQUIN [Concomitant]

REACTIONS (5)
  - ARRHYTHMIA [None]
  - BLISTER [None]
  - BURNING SENSATION [None]
  - PHARYNGOLARYNGEAL PAIN [None]
  - PRURITUS [None]
